FAERS Safety Report 6198269-9 (Version None)
Quarter: 2009Q2

REPORT INFORMATION
  Report Type: 
  Country: None (occurrence: None)
  Receive Date: 20090519
  Receipt Date: 20090504
  Transmission Date: 20091009
  Serious: Yes (Hospitalization, Other)
  Sender: FDA-Public Use
  Company Number: A-NJ2009-25044

PATIENT
  Age: 79 Year
  Sex: Female
  Weight: 94.8 kg

DRUGS (14)
  1. TRACLEER [Suspect]
     Indication: PULMONARY ARTERIAL HYPERTENSION
     Dosage: 62.5 MG, BID. ORAL
     Route: 048
     Dates: start: 20080208
  2. EPOGEN [Concomitant]
  3. SYNTHROID [Concomitant]
  4. LIPITOR [Concomitant]
  5. PREDNISONE TAB [Concomitant]
  6. SPIRIVA [Concomitant]
  7. ADVAIR (SALMETEROL XINAFOATE, FLUTICASONE PROPIONATE) [Concomitant]
  8. PLETAL [Concomitant]
  9. ULTRAM [Concomitant]
  10. LASIX [Concomitant]
  11. ZESTRIL [Concomitant]
  12. SOTALOL HCL [Concomitant]
  13. PROTONIX [Concomitant]
  14. COUMADIN [Concomitant]

REACTIONS (2)
  - DEEP VEIN THROMBOSIS [None]
  - DYSPNOEA [None]
